FAERS Safety Report 4456735-8 (Version None)
Quarter: 2004Q3

REPORT INFORMATION
  Report Type: 
  Country: None (occurrence: None)
  Receive Date: 20040923
  Receipt Date: 20040914
  Transmission Date: 20050211
  Serious: Yes (Hospitalization)
  Sender: FDA-Public Use
  Company Number: US-JNJFOC-20040904822

PATIENT
  Age: 69 Year
  Sex: Female

DRUGS (6)
  1. DURAGESIC [Suspect]
     Indication: CANCER PAIN
     Route: 062
     Dates: start: 20040201
  2. O2 [Concomitant]
     Route: 055
  3. LORTAB [Concomitant]
  4. LORTAB [Concomitant]
     Indication: PAIN
  5. VITAMIN [Concomitant]
  6. POTASSIUM [Concomitant]

REACTIONS (1)
  - MYOCARDIAL INFARCTION [None]
